FAERS Safety Report 5644546-7 (Version None)
Quarter: 2008Q1

REPORT INFORMATION
  Report Type: 
  Country: None (occurrence: None)
  Receive Date: 20080229
  Receipt Date: 20070226
  Transmission Date: 20080703
  Serious: No
  Sender: FDA-Public Use
  Company Number: A0640995A

PATIENT
  Sex: Female

DRUGS (4)
  1. VALTREX [Suspect]
     Indication: IMMUNOSUPPRESSANT DRUG THERAPY
     Dosage: 500MG PER DAY
     Route: 048
     Dates: start: 20070223
  2. ZETIA [Concomitant]
  3. BENZOYL PEROXIDE [Concomitant]
  4. UNKNOWN DRUG [Concomitant]

REACTIONS (2)
  - FLUSHING [None]
  - PRURITUS [None]
